FAERS Safety Report 13361733 (Version 1)
Quarter: 2017Q1

REPORT INFORMATION
  Report Type: Spontaneous
  Country: US (occurrence: US)
  Receive Date: 20170321
  Receipt Date: 20170321
  Transmission Date: 20170429
  Serious: No
  Sender: FDA-Public Use
  Company Number: None

PATIENT
  Age: 27 Year
  Sex: Male

DRUGS (1)
  1. STELARA [Suspect]
     Active Substance: USTEKINUMAB
     Indication: BREAST CANCER FEMALE
     Dosage: 45MG EVERY 3 MONTH SQ
     Route: 058
     Dates: start: 20161103

REACTIONS (3)
  - Fatigue [None]
  - Oropharyngeal pain [None]
  - Pyrexia [None]

NARRATIVE: CASE EVENT DATE: 20170117
